FAERS Safety Report 16810383 (Version 1)
Quarter: 2019Q3

REPORT INFORMATION
  Report Type: Spontaneous
  Country: US (occurrence: US)
  Receive Date: 20190916
  Receipt Date: 20190916
  Transmission Date: 20191005
  Serious: Yes (Hospitalization)
  Sender: FDA-Public Use
  Company Number: US-VERTEX PHARMACEUTICALS-2019-008778

PATIENT
  Age: 20 Year
  Sex: Male

DRUGS (15)
  1. CAYSTON [Concomitant]
     Active Substance: AZTREONAM
  2. DRONABINOL. [Concomitant]
     Active Substance: DRONABINOL
  3. VITAMAX [Concomitant]
  4. SYMDEKO [Suspect]
     Active Substance: IVACAFTOR\TEZACAFTOR
     Indication: CYSTIC FIBROSIS
     Dosage: 100MG TEZACAFTOR/150MG IVACAFTOR AM; 150MG IVACAFTOR PM
     Route: 048
     Dates: start: 201803
  5. SODIUM CHLORIDE. [Concomitant]
     Active Substance: SODIUM CHLORIDE
  6. FLOVENT [Concomitant]
     Active Substance: FLUTICASONE PROPIONATE
  7. OMEPRAZOLE. [Concomitant]
     Active Substance: OMEPRAZOLE
  8. AZITHROMYCIN ANHYDROUS. [Concomitant]
     Active Substance: AZITHROMYCIN ANHYDROUS
  9. CREON [Concomitant]
     Active Substance: PANCRELIPASE AMYLASE\PANCRELIPASE LIPASE\PANCRELIPASE PROTEASE
  10. ADVAIR HFA [Concomitant]
     Active Substance: FLUTICASONE PROPIONATE\SALMETEROL XINAFOATE
  11. ZINC. [Concomitant]
     Active Substance: ZINC
  12. PULMOZYME [Concomitant]
     Active Substance: DORNASE ALFA
  13. VITAMIN D3 [Concomitant]
     Active Substance: CHOLECALCIFEROL
  14. ALBUTEROL SULFATE. [Concomitant]
     Active Substance: ALBUTEROL SULFATE
  15. MONTELUKAST [Concomitant]
     Active Substance: MONTELUKAST SODIUM

REACTIONS (1)
  - Cystic fibrosis respiratory infection suppression [Unknown]

NARRATIVE: CASE EVENT DATE: 20190819
